FAERS Safety Report 23598089 (Version 1)
Quarter: 2024Q1

REPORT INFORMATION
  Report Type: Spontaneous
  Country: ES (occurrence: ES)
  Receive Date: 20240305
  Receipt Date: 20240305
  Transmission Date: 20240410
  Serious: Yes (Other)
  Sender: FDA-Public Use
  Company Number: None

PATIENT
  Age: 56 Year
  Sex: Male

DRUGS (5)
  1. AVAPRITINIB [Suspect]
     Active Substance: AVAPRITINIB
     Indication: Gastrointestinal stromal tumour
     Route: 065
     Dates: start: 20230328, end: 20230525
  2. AVAPRITINIB [Suspect]
     Active Substance: AVAPRITINIB
     Route: 048
     Dates: start: 20230526, end: 20230623
  3. ENALAPRIL/HIDROCLOROTIAZIDA VIATRIS 20/12,5 MG COMPRIMIDOS EFG, 28 com [Concomitant]
     Indication: Product used for unknown indication
     Dosage: 20/12,5 MG
     Route: 048
     Dates: start: 20191223
  4. PRAVAFENIX 40 mg/160 mg CAPSULAS DURAS, 30 capsulas [Concomitant]
     Indication: Product used for unknown indication
     Dosage: 40 MG/160 MG
     Route: 048
     Dates: start: 20180404
  5. ASPIRIN [Concomitant]
     Active Substance: ASPIRIN
     Indication: Product used for unknown indication
     Dates: start: 20210909

REACTIONS (4)
  - Gait disturbance [Not Recovered/Not Resolved]
  - Eyelid oedema [Recovered/Resolved]
  - Labyrinthitis [Not Recovered/Not Resolved]
  - Tinnitus [Not Recovered/Not Resolved]

NARRATIVE: CASE EVENT DATE: 20230525
